FAERS Safety Report 9300463 (Version 2)
Quarter: 2013Q2

REPORT INFORMATION
  Report Type: Spontaneous
  Country: US (occurrence: US)
  Receive Date: 20130521
  Receipt Date: 20130530
  Transmission Date: 20140414
  Serious: No
  Sender: FDA-Public Use
  Company Number: US-VERTEX PHARMACEUTICALS INC-2013-006164

PATIENT
  Age: 52 Year
  Sex: Female
  Weight: 138 kg

DRUGS (6)
  1. INCIVEK [Suspect]
     Indication: HEPATITIS C
     Dosage: 750 MG, TID
     Route: 048
     Dates: start: 20130508, end: 20130515
  2. RIBASPHERE [Suspect]
     Indication: HEPATITIS C
     Dosage: 800MG IN AM AND 600MG IN PM
     Route: 048
     Dates: start: 20130508, end: 20130515
  3. PEGASYS [Suspect]
     Indication: HEPATITIS C
     Dosage: 180 ?G, WEEKLY
     Route: 058
     Dates: start: 20130508, end: 20130515
  4. CELEXA [Concomitant]
     Indication: DEPRESSION
     Dosage: 40 MG, QD
     Route: 048
  5. SEROQUEL [Concomitant]
     Indication: ANXIETY
     Dosage: 100 MG, BID
     Route: 048
  6. HYDROXYZINE [Concomitant]
     Indication: ANXIETY
     Dosage: 25 MG, Q 6 HOURS
     Route: 048

REACTIONS (4)
  - Dyspnoea [Recovered/Resolved]
  - Decreased appetite [Not Recovered/Not Resolved]
  - Feeling abnormal [Recovered/Resolved]
  - Urticaria [Recovered/Resolved]
